FAERS Safety Report 8501886-1 (Version None)
Quarter: 2012Q3

REPORT INFORMATION
  Report Type: 
  Country: None (occurrence: None)
  Receive Date: 20120711
  Receipt Date: 20120705
  Transmission Date: 20120928
  Serious: Yes (Other)
  Sender: FDA-Public Use
  Company Number: PHEH2012US013412

PATIENT
  Sex: Male

DRUGS (1)
  1. GLEEVEC [Suspect]
     Indication: CHRONIC MYELOID LEUKAEMIA
     Dosage: 600 MG (02 TABS OF 100 MG AND 01 TABS OF 400 MG)
     Route: 048
     Dates: start: 20120523

REACTIONS (3)
  - ANKLE FRACTURE [None]
  - NAUSEA [None]
  - FATIGUE [None]
